FAERS Safety Report 10393581 (Version 2)
Quarter: 2014Q4

REPORT INFORMATION
  Report Type: Spontaneous
  Country: JP (occurrence: JP)
  Receive Date: 20140819
  Receipt Date: 20141015
  Transmission Date: 20150528
  Serious: Yes (Life-Threatening, Other)
  Sender: FDA-Public Use
  Company Number: JP-BRISTOL-MYERS SQUIBB COMPANY-21307574

PATIENT
  Age: 78 Year
  Sex: Female

DRUGS (7)
  1. PRADAXA [Concomitant]
     Active Substance: DABIGATRAN ETEXILATE MESYLATE
     Indication: THROMBOSIS PROPHYLAXIS
  2. METGLUCO [Suspect]
     Active Substance: METFORMIN HYDROCHLORIDE
     Indication: DIABETES MELLITUS MANAGEMENT
     Route: 048
     Dates: end: 20140624
  3. MAGNESIUM OXIDE. [Concomitant]
     Active Substance: MAGNESIUM OXIDE
     Indication: CONSTIPATION
  4. JANUVIA [Concomitant]
     Active Substance: SITAGLIPTIN PHOSPHATE
     Indication: DIABETES MELLITUS MANAGEMENT
  5. SELBEX [Concomitant]
     Active Substance: TEPRENONE
     Indication: GASTROINTESTINAL MUCOSAL DISORDER
  6. AMARYL [Concomitant]
     Active Substance: GLIMEPIRIDE
     Indication: DIABETES MELLITUS MANAGEMENT
  7. MEVALOTIN [Concomitant]
     Active Substance: PRAVASTATIN SODIUM
     Indication: LIPIDS ABNORMAL

REACTIONS (4)
  - Renal failure [Recovered/Resolved]
  - Cardiac arrest [Recovered/Resolved]
  - Lactic acidosis [Recovering/Resolving]
  - Hepatic function abnormal [Recovered/Resolved]

NARRATIVE: CASE EVENT DATE: 20140621
